FAERS Safety Report 4830911-4 (Version None)
Quarter: 2005Q4

REPORT INFORMATION
  Report Type: 
  Country: None (occurrence: None)
  Receive Date: 20051117
  Receipt Date: 20050810
  Transmission Date: 20060501
  Serious: Yes (Hospitalization)
  Sender: FDA-Public Use
  Company Number: US-MERCK-0508USA01967

PATIENT
  Age: 59 Year
  Sex: Male
  Weight: 100 kg

DRUGS (10)
  1. VIOXX [Suspect]
     Indication: ARTHRITIS
     Route: 048
     Dates: start: 20001128, end: 20040210
  2. VIOXX [Suspect]
     Indication: PAIN IN EXTREMITY
     Route: 048
     Dates: start: 20001128, end: 20040210
  3. TRAZODONE HYDROCHLORIDE [Concomitant]
     Indication: OBESITY
     Route: 065
  4. ALLOPURINOL [Concomitant]
     Indication: GOUT
     Route: 065
  5. LIPITOR [Concomitant]
     Indication: BLOOD CHOLESTEROL INCREASED
     Route: 065
  6. ZOCOR [Concomitant]
     Indication: BLOOD CHOLESTEROL INCREASED
     Route: 048
  7. PRINIVIL [Concomitant]
     Indication: HYPERTENSION
     Route: 048
  8. MEPREDNISONE [Concomitant]
     Indication: ARTHRITIS
     Route: 065
     Dates: start: 20011201
  9. RHINOCORT [Concomitant]
     Route: 065
  10. ZITHROMAX [Concomitant]
     Route: 065

REACTIONS (5)
  - ANGINA PECTORIS [None]
  - CARDIAC FAILURE CONGESTIVE [None]
  - CHEST PAIN [None]
  - CORONARY ARTERY DISEASE [None]
  - CORONARY ARTERY THROMBOSIS [None]
